FAERS Safety Report 10148859 (Version 1)
Quarter: 2014Q2

REPORT INFORMATION
  Report Type: Spontaneous
  Country: CA (occurrence: CA)
  Receive Date: 20140502
  Receipt Date: 20140502
  Transmission Date: 20141212
  Serious: Yes (Hospitalization, Other)
  Sender: FDA-Public Use
  Company Number: CA-009507513-1404CAN014456

PATIENT
  Age: 46 Year
  Sex: Male

DRUGS (10)
  1. ISENTRESS [Suspect]
     Route: 048
  2. FRISIUM [Interacting]
     Dosage: 10 MG, QD
     Route: 048
  3. FRISIUM [Interacting]
     Dosage: 10 MG, QD
     Route: 048
  4. FRISIUM [Interacting]
     Dosage: 2 MG, QD
     Route: 048
  5. INTELENCE [Interacting]
     Dosage: UNK
     Route: 048
  6. KALETRA [Interacting]
     Route: 065
  7. VALPROIC ACID [Interacting]
     Dosage: 1500 MG, QD
     Route: 065
  8. VALPROIC ACID [Interacting]
     Dosage: 2500 MG, QD
     Route: 065
  9. VALPROIC ACID [Interacting]
     Dosage: 2000 MG, QD
     Route: 065
  10. EMTRICITABINE (+) TENOFOVIR DISOPROXIL FUMARATE [Interacting]
     Route: 048

REACTIONS (6)
  - Dysarthria [Recovering/Resolving]
  - Drug interaction [Recovering/Resolving]
  - Gait disturbance [Recovering/Resolving]
  - Slow speech [Recovering/Resolving]
  - Somnolence [Recovering/Resolving]
  - Asthenia [Recovering/Resolving]
